FAERS Safety Report 5329635-9 (Version None)
Quarter: 2007Q1

REPORT INFORMATION
  Report Type: 
  Country: None (occurrence: None)
  Receive Date: 20070227
  Receipt Date: 20060126
  Transmission Date: 20070707
  Serious: Yes (Other)
  Sender: FDA-Public Use
  Company Number: 433924

PATIENT
  Sex: 0

DRUGS (2)
  1. ACCUTANE [Suspect]
     Indication: ACNE
     Dosage: ORAL
     Route: 048
  2. SOTRET [Suspect]
     Indication: ACNE
     Dosage: ORAL
     Route: 048
     Dates: start: 20050108, end: 20050326

REACTIONS (2)
  - ABORTION SPONTANEOUS [None]
  - NO ADVERSE EFFECT [None]
